FAERS Safety Report 18586016 (Version 3)
Quarter: 2020Q4

REPORT INFORMATION
  Report Type: Spontaneous
  Country: JP (occurrence: JP)
  Receive Date: 20201207
  Receipt Date: 20201222
  Transmission Date: 20210114
  Serious: Yes (Other)
  Sender: FDA-Public Use
  Company Number: JP-PFIZER INC-2020475838

PATIENT
  Age: 72 Year
  Sex: Female

DRUGS (2)
  1. PISULCIN [Concomitant]
     Active Substance: AMPICILLIN SODIUM\SULBACTAM SODIUM
     Dosage: 3 G, 3X/DAY
     Route: 048
  2. METHOTREXATE SODIUM. [Suspect]
     Active Substance: METHOTREXATE SODIUM
     Dosage: 3 DF, WEEKLY (2 CAP IN THE MORNING AND 1CAP IN THE EVENING ON MONDAY)
     Route: 048

REACTIONS (4)
  - Dehydration [Unknown]
  - Renal impairment [Unknown]
  - Blood test abnormal [Unknown]
  - Myelosuppression [Recovering/Resolving]

NARRATIVE: CASE EVENT DATE: 20201202
